FAERS Safety Report 21077095 (Version 1)
Quarter: 2022Q3

REPORT INFORMATION
  Report Type: Spontaneous
  Country: US (occurrence: None)
  Receive Date: 20220713
  Receipt Date: 20220713
  Transmission Date: 20221027
  Serious: No
  Sender: FDA-Public Use
  Company Number: None

PATIENT
  Age: 28 Year
  Sex: Female
  Weight: 83.25 kg

DRUGS (1)
  1. NURTEC ODT [Suspect]
     Active Substance: RIMEGEPANT SULFATE
     Indication: Migraine
     Dosage: FREQUENCY : AS NEEDED;?
     Route: 048

REACTIONS (3)
  - Paraesthesia [None]
  - Paraesthesia [None]
  - Dry mouth [None]

NARRATIVE: CASE EVENT DATE: 20220713
